FAERS Safety Report 7258213 (Version 2)
Quarter: 2017Q4

REPORT INFORMATION
  Report Type: Report from Study
  Country: US (occurrence: US)
  Receive Date: 20100127
  Receipt Date: 20171117
  Transmission Date: 20180321
  Serious: Yes (Disabling, Other)
  Sender: FDA-Public Use
  Company Number: US-B.I. PHARMACEUTICALS,INC./RIDGEFIELD-2010-DE-00154GD

PATIENT
  Age: 61 Year
  Sex: Female

DRUGS (6)
  1. PRAMIPEXOLE. [Suspect]
     Active Substance: PRAMIPEXOLE
     Indication: PARKINSON^S DISEASE
     Route: 065
  2. LEVODOPA [Concomitant]
     Active Substance: LEVODOPA
     Route: 065
  3. PRAMIPEXOLE. [Suspect]
     Active Substance: PRAMIPEXOLE
     Route: 065
  4. LEVODOPA [Concomitant]
     Active Substance: LEVODOPA
     Indication: PARKINSON^S DISEASE
     Route: 065
  5. LEVODOPA [Concomitant]
     Active Substance: LEVODOPA
     Route: 065
  6. PRAMIPEXOLE. [Suspect]
     Active Substance: PRAMIPEXOLE
     Route: 065

REACTIONS (15)
  - Anxiety [Unknown]
  - Impulse-control disorder [Not Recovered/Not Resolved]
  - Compulsions [Not Recovered/Not Resolved]
  - Restless legs syndrome [Unknown]
  - Drug withdrawal syndrome [Not Recovered/Not Resolved]
  - Fatigue [Unknown]
  - Compulsive shopping [Not Recovered/Not Resolved]
  - Depression [Unknown]
  - Crying [Unknown]
  - Impaired work ability [Unknown]
  - Motor dysfunction [Unknown]
  - Agitation [Unknown]
  - Insomnia [Unknown]
  - Orthostatic hypotension [Recovered/Resolved]
  - Eating disorder [Not Recovered/Not Resolved]
